FAERS Safety Report 17589038 (Version 1)
Quarter: 2020Q1

REPORT INFORMATION
  Report Type: Spontaneous
  Country: GB (occurrence: GB)
  Receive Date: 20200327
  Receipt Date: 20200327
  Transmission Date: 20200409
  Serious: Yes (Other)
  Sender: FDA-Public Use
  Company Number: GB-TEVA-2020-GB-1211197

PATIENT
  Age: 66 Year
  Sex: Female

DRUGS (5)
  1. AMLODIPINE [Suspect]
     Active Substance: AMLODIPINE BESYLATE
     Dosage: 5 MG
  2. INTRAROSA [Suspect]
     Active Substance: PRASTERONE
     Indication: ATROPHIC VULVOVAGINITIS
     Dosage: 1 (6.5MG) PESSARY AT NIGHT
     Route: 067
     Dates: start: 20200130, end: 20200301
  3. LEVOTHYROXINE SODIUM. [Concomitant]
     Active Substance: LEVOTHYROXINE SODIUM
  4. ESTRADIOL. [Concomitant]
     Active Substance: ESTRADIOL
  5. POLYANTIBIOTIC [Concomitant]

REACTIONS (5)
  - Extrasystoles [Unknown]
  - Headache [Unknown]
  - Tachycardia [Unknown]
  - Heart rate increased [Unknown]
  - Hypertension [Not Recovered/Not Resolved]

NARRATIVE: CASE EVENT DATE: 20190201
